FAERS Safety Report 18144986 (Version 1)
Quarter: 2020Q3

REPORT INFORMATION
  Report Type: Spontaneous
  Country: US (occurrence: US)
  Receive Date: 20200813
  Receipt Date: 20200813
  Transmission Date: 20201103
  Serious: Yes (Hospitalization)
  Sender: FDA-Public Use
  Company Number: None

PATIENT
  Age: 52 Year
  Sex: Female

DRUGS (41)
  1. CIPROFLOXLACN [Concomitant]
  2. FLUCONAZOLE. [Concomitant]
     Active Substance: FLUCONAZOLE
  3. METHOCARBAM [Concomitant]
     Active Substance: METHOCARBAMOL
  4. VRAYLAR [Concomitant]
     Active Substance: CARIPRAZINE
  5. HYDROXYZ PAM [Concomitant]
     Active Substance: HYDROXYZINE PAMOATE
  6. ONDANSETRON [Concomitant]
     Active Substance: ONDANSETRON
  7. BELSOMRA [Concomitant]
     Active Substance: SUVOREXANT
  8. CEPHALEXIN. [Concomitant]
     Active Substance: CEPHALEXIN
  9. CYCLOBENZAPR [Concomitant]
     Active Substance: CYCLOBENZAPRINE
  10. NYSTATIN. [Concomitant]
     Active Substance: NYSTATIN
  11. PAROXETINE. [Concomitant]
     Active Substance: PAROXETINE
  12. TRAZODONE [Concomitant]
     Active Substance: TRAZODONE HYDROCHLORIDE
  13. TRESIBA FLEX [Concomitant]
  14. ALPRAZOLAM. [Concomitant]
     Active Substance: ALPRAZOLAM
  15. AZITHROMTCIN [Concomitant]
  16. DESONIDE. [Concomitant]
     Active Substance: DESONIDE
  17. HYOSCYAMINE. [Concomitant]
     Active Substance: HYOSCYAMINE
  18. KETOCONAZOLE. [Concomitant]
     Active Substance: KETOCONAZOLE
  19. LIDOCAINE. [Concomitant]
     Active Substance: LIDOCAINE
  20. METFORMIN [Concomitant]
     Active Substance: METFORMIN HYDROCHLORIDE
  21. SAPHRIS [Concomitant]
     Active Substance: ASENAPINE MALEATE
  22. SOLIFENACIN [Concomitant]
     Active Substance: SOLIFENACIN
  23. COSENTYX [Suspect]
     Active Substance: SECUKINUMAB
     Indication: PSORIASIS
     Dosage: ?          OTHER DOSE:2 PENS;OTHER FREQUENCY:WKS0, 1, 2, 3;?
     Route: 058
     Dates: start: 20190602
  24. CLINDAMYCIN. [Concomitant]
     Active Substance: CLINDAMYCIN
  25. JARDIANCE [Concomitant]
     Active Substance: EMPAGLIFLOZIN
  26. CLOBETASOL [Concomitant]
     Active Substance: CLOBETASOL
  27. DICLOFENAC [Concomitant]
     Active Substance: DICLOFENAC
  28. DOXYCYCL  HYC [Concomitant]
  29. GENTAMICIN. [Concomitant]
     Active Substance: GENTAMICIN
  30. HYDROCO/APAP [Concomitant]
     Active Substance: ACETAMINOPHEN\HYDROCODONE
  31. ISOSORB MONO [Concomitant]
     Active Substance: ISOSORBIDE MONONITRATE
  32. QUETIAPINE. [Concomitant]
     Active Substance: QUETIAPINE
  33. ROPINIROLE. [Concomitant]
     Active Substance: ROPINIROLE
  34. TRAMADOL HCL [Concomitant]
     Active Substance: TRAMADOL HYDROCHLORIDE
  35. BUSPIRONE [Concomitant]
     Active Substance: BUSPIRONE HYDROCHLORIDE
  36. ASPIRIN 81MG [Concomitant]
     Active Substance: ASPIRIN
  37. BACLOFEN. [Concomitant]
     Active Substance: BACLOFEN
  38. LEVOTHYROXIN [Concomitant]
     Active Substance: LEVOTHYROXINE
  39. PREGABALIN. [Concomitant]
     Active Substance: PREGABALIN
  40. PROMETHAZINE [Concomitant]
     Active Substance: PROMETHAZINE HYDROCHLORIDE
  41. ROSUVASTATIN. [Concomitant]
     Active Substance: ROSUVASTATIN

REACTIONS (1)
  - Hospitalisation [None]

NARRATIVE: CASE EVENT DATE: 20200811
